FAERS Safety Report 8197542-2 (Version None)
Quarter: 2012Q1

REPORT INFORMATION
  Report Type: 
  Country: None (occurrence: None)
  Receive Date: 20120307
  Receipt Date: 20120224
  Transmission Date: 20120608
  Serious: Yes (Other)
  Sender: FDA-Public Use
  Company Number: 1206847

PATIENT
  Sex: Female

DRUGS (2)
  1. LIDOCAINE HYDROCHLORIDE 2% W/ EPINEPHRINE INJ [Suspect]
     Indication: HAEMORRHAGE
     Dosage: DEEP INJECTION OTHER
  2. NEUT (4% SODIUM BICARBONATE ADDITIVE SOLUTION) (SODIUM HYDROGEN CARBON [Suspect]
     Indication: HAEMORRHAGE
     Dosage: DEEP INJECTION OTHER

REACTIONS (2)
  - NECROSIS [None]
  - OFF LABEL USE [None]
